FAERS Safety Report 17488441 (Version 1)
Quarter: 2020Q1

REPORT INFORMATION
  Report Type: Spontaneous
  Country: US (occurrence: US)
  Receive Date: 20200302
  Receipt Date: 20200302
  Transmission Date: 20200409
  Serious: Yes (Hospitalization)
  Sender: FDA-Public Use
  Company Number: None

PATIENT
  Age: 25 Year
  Sex: Male
  Weight: 88 kg

DRUGS (4)
  1. MESALAMINE. [Concomitant]
     Active Substance: MESALAMINE
  2. ALBUTEROL. [Concomitant]
     Active Substance: ALBUTEROL
  3. VEDOLIZUMAB [Suspect]
     Active Substance: VEDOLIZUMAB
     Indication: CROHN^S DISEASE
     Dosage: ?          OTHER FREQUENCY:Q 8 WEEKS;?
     Route: 041
     Dates: start: 20191011, end: 20191101
  4. TRAMADOL. [Concomitant]
     Active Substance: TRAMADOL

REACTIONS (6)
  - Pericardial effusion [None]
  - Crohn^s disease [None]
  - Cardiac tamponade [None]
  - Lupus-like syndrome [None]
  - Pericarditis [None]
  - Influenza like illness [None]

NARRATIVE: CASE EVENT DATE: 20191023
